FAERS Safety Report 9285492 (Version 1)
Quarter: 2013Q2

REPORT INFORMATION
  Report Type: Spontaneous
  Country: US (occurrence: US)
  Receive Date: 20130513
  Receipt Date: 20130513
  Transmission Date: 20140414
  Serious: No
  Sender: FDA-Public Use
  Company Number: US-PFIZER INC-2013144419

PATIENT
  Sex: Female

DRUGS (4)
  1. XANAX [Suspect]
     Dosage: UNK
  2. SKELAXIN [Suspect]
     Indication: MUSCLE SPASMS
     Dosage: 1/2 800MG TABLET BID FOR 2 DAYS
  3. SKELAXIN [Suspect]
     Dosage: 800 MG, UNK
  4. AMBIEN [Suspect]
     Dosage: UNK, ONCE AT BEDTIME (QHS)

REACTIONS (4)
  - Fibromyalgia [Unknown]
  - Pain [Unknown]
  - Malaise [Unknown]
  - Pain in extremity [Not Recovered/Not Resolved]
